FAERS Safety Report 6759505-0 (Version None)
Quarter: 2010Q2

REPORT INFORMATION
  Report Type: 
  Country: None (occurrence: None)
  Receive Date: 20100603
  Receipt Date: 20100527
  Transmission Date: 20101027
  Serious: Yes (Other)
  Sender: FDA-Public Use
  Company Number: OMPQ-NO-1005S-0336

PATIENT
  Age: 40 Year
  Sex: Female

DRUGS (1)
  1. OMNIPAQUE 140 [Suspect]
     Indication: DRUG USE FOR UNKNOWN INDICATION
     Dosage: 80 ML, SINGLE DOSE, I.V.
     Route: 042
     Dates: start: 20100202, end: 20100202

REACTIONS (5)
  - CONTRAST MEDIA REACTION [None]
  - DIZZINESS [None]
  - HYPERSENSITIVITY [None]
  - PETECHIAE [None]
  - RASH GENERALISED [None]
